FAERS Safety Report 9195944 (Version 1)
Quarter: 2013Q1

REPORT INFORMATION
  Report Type: Spontaneous
  Country: MX (occurrence: MX)
  Receive Date: 20130328
  Receipt Date: 20130328
  Transmission Date: 20140127
  Serious: Yes (Other)
  Sender: FDA-Public Use
  Company Number: PHHY2013MX027230

PATIENT
  Age: 69 Year
  Sex: Female

DRUGS (5)
  1. CO-DIOVAN [Suspect]
     Indication: HYPERTENSION
     Dosage: 1 DF, (160 MG VALS AND 12.5 MG HYDRO) DAILY
     Route: 048
     Dates: start: 20100318
  2. VENALOT DEPOT [Concomitant]
     Indication: CARDIOVASCULAR DISORDER
     Dosage: 2 DF, UNK
  3. ASPIRINE PROTECT [Concomitant]
     Dosage: 1 DF, DAILY
  4. FLANAX [Concomitant]
     Dosage: 1 DF, DAILY
  5. BUTILHIOSCINA [Concomitant]
     Dosage: 3 DF, DAILY

REACTIONS (7)
  - Medical device complication [Recovered/Resolved]
  - Heart rate decreased [Recovered/Resolved]
  - Blood pressure diastolic decreased [Recovering/Resolving]
  - Pain [Recovered/Resolved]
  - Muscle spasms [Recovered/Resolved]
  - Procedural pain [Unknown]
  - Insomnia [Not Recovered/Not Resolved]
